FAERS Safety Report 7725187-4 (Version None)
Quarter: 2011Q3

REPORT INFORMATION
  Report Type: 
  Country: None (occurrence: None)
  Receive Date: 20110901
  Receipt Date: 20110825
  Transmission Date: 20111222
  Serious: Yes (Hospitalization)
  Sender: FDA-Public Use
  Company Number: FR-ABBOTT-11P-056-0849655-00

PATIENT
  Age: 63 Year
  Sex: Female

DRUGS (3)
  1. URBANYL [Concomitant]
     Indication: PRODUCT USED FOR UNKNOWN INDICATION
     Dates: start: 20110201
  2. DEPAKENE [Suspect]
     Indication: PRODUCT USED FOR UNKNOWN INDICATION
     Route: 048
     Dates: end: 20110316
  3. NUCTALON [Concomitant]
     Indication: PRODUCT USED FOR UNKNOWN INDICATION
     Dates: start: 20110201

REACTIONS (6)
  - FALL [None]
  - CONFUSIONAL STATE [None]
  - THROMBOCYTOPENIA [None]
  - EXTRAPYRAMIDAL DISORDER [None]
  - DRUG LEVEL INCREASED [None]
  - TREMOR [None]
